FAERS Safety Report 8448058-7 (Version None)
Quarter: 2012Q2

REPORT INFORMATION
  Report Type: 
  Country: None (occurrence: None)
  Receive Date: 20120619
  Receipt Date: 20120618
  Transmission Date: 20120825
  Serious: Yes (Other)
  Sender: FDA-Public Use
  Company Number: US-PFIZER INC-2012146680

PATIENT
  Sex: Female
  Weight: 68.027 kg

DRUGS (6)
  1. LORAZEPAM [Concomitant]
     Indication: BIPOLAR DISORDER
     Dosage: 0.5 MG, 1X/DAY
  2. COMBIVENT [Concomitant]
     Indication: ASTHMA
     Dosage: UNK
     Dates: start: 20040101
  3. PROTONIX [Suspect]
     Indication: GASTROOESOPHAGEAL REFLUX DISEASE
     Dosage: 40 MG, DAILY
     Dates: start: 20070101
  4. THORAZINE [Concomitant]
     Indication: BIPOLAR DISORDER
     Dosage: 50 MG, 1X/DAY
  5. LAMICTAL [Concomitant]
     Indication: BIPOLAR DISORDER
     Dosage: 100 MG, UNK
     Route: 048
  6. ADVAIR DISKUS 100/50 [Concomitant]
     Indication: ASTHMA
     Dosage: 500/50 MG, UNK
     Dates: start: 20040101

REACTIONS (1)
  - BARRETT'S OESOPHAGUS [None]
